FAERS Safety Report 10463157 (Version 1)
Quarter: 2014Q3

REPORT INFORMATION
  Report Type: Spontaneous
  Country: GB (occurrence: GB)
  Receive Date: 20140919
  Receipt Date: 20140919
  Transmission Date: 20150326
  Serious: Yes (Death, Hospitalization)
  Sender: FDA-Public Use
  Company Number: GB-BIOGENIDEC-2014BI093841

PATIENT
  Age: 64 Year
  Sex: Male

DRUGS (1)
  1. TYSABRI [Suspect]
     Active Substance: NATALIZUMAB
     Indication: MULTIPLE SCLEROSIS
     Dates: start: 201310, end: 201312

REACTIONS (9)
  - Hepatic steatosis [Unknown]
  - Drug-induced liver injury [Fatal]
  - Blood albumin decreased [Not Recovered/Not Resolved]
  - Eosinophilia [Not Recovered/Not Resolved]
  - Malaise [Not Recovered/Not Resolved]
  - Cardiac hypertrophy [Unknown]
  - Myocardial ischaemia [Unknown]
  - Medication error [Not Recovered/Not Resolved]
  - Cardiac failure acute [Unknown]

NARRATIVE: CASE EVENT DATE: 201312
